FAERS Safety Report 5308798-5 (Version None)
Quarter: 2007Q2

REPORT INFORMATION
  Report Type: 
  Country: None (occurrence: None)
  Receive Date: 20070426
  Receipt Date: 20070322
  Transmission Date: 20071010
  Serious: Yes (Other)
  Sender: FDA-Public Use
  Company Number: US-SHR-US-2007-010024

PATIENT
  Age: 28 Year
  Sex: Male

DRUGS (3)
  1. BETASERON [Suspect]
     Route: 058
     Dates: start: 20070131, end: 20070207
  2. BETASERON [Suspect]
     Dosage: 4 MIU, EVERY 2D
     Route: 058
     Dates: start: 20070226
  3. BETASERON [Suspect]
     Dosage: 2 MIU, EVERY 2D
     Route: 058

REACTIONS (3)
  - FEELING ABNORMAL [None]
  - GAIT DISTURBANCE [None]
  - INJECTION SITE PAIN [None]
